FAERS Safety Report 7910996 (Version 15)
Quarter: 2024Q1

REPORT INFORMATION
  Report Type: Report from Study
  Country: CA (occurrence: CA)
  Receive Date: 20110422
  Receipt Date: 20240124
  Transmission Date: 20240410
  Serious: Yes (Hospitalization, Other)
  Sender: FDA-Public Use
  Company Number: PHHY2011CA18868

PATIENT
  Age: 59 Year
  Sex: Female

DRUGS (3)
  1. SANDOSTATIN LAR DEPOT [Suspect]
     Active Substance: OCTREOTIDE ACETATE
     Indication: Acromegaly
     Dosage: 20 MG, QMO (EVERY 4 WEEKS)
     Route: 030
     Dates: start: 20040710
  2. SANDOSTATIN LAR DEPOT [Suspect]
     Active Substance: OCTREOTIDE ACETATE
     Dosage: 20 MG (EVEY 6 WEEKS)
     Route: 030
     Dates: start: 20040710, end: 20220210
  3. SANDOSTATIN LAR DEPOT [Suspect]
     Active Substance: OCTREOTIDE ACETATE
     Dosage: 10 MG, 6 WEEKS
     Route: 030

REACTIONS (11)
  - Pyrexia [Recovered/Resolved]
  - Cystitis [Unknown]
  - Dysuria [Unknown]
  - Influenza [Unknown]
  - Body temperature decreased [Unknown]
  - Breast mass [Unknown]
  - Heart rate decreased [Unknown]
  - Pain in extremity [Unknown]
  - Headache [Unknown]
  - Inappropriate schedule of product administration [Unknown]
  - Injection site discomfort [Unknown]

NARRATIVE: CASE EVENT DATE: 20150101
